FAERS Safety Report 10911406 (Version 2)
Quarter: 2015Q1

REPORT INFORMATION
  Report Type: Spontaneous
  Country: JP (occurrence: JP)
  Receive Date: 20150313
  Receipt Date: 20150316
  Transmission Date: 20150721
  Serious: Yes (Death, Hospitalization, Other)
  Sender: FDA-Public Use
  Company Number: JP-ROCHE-1549559

PATIENT
  Age: 71 Year
  Sex: Male

DRUGS (2)
  1. AVASTIN [Suspect]
     Active Substance: BEVACIZUMAB
     Indication: MALIGNANT NEOPLASM OF UNKNOWN PRIMARY SITE
     Route: 041
     Dates: start: 201201, end: 201207
  2. DOCETAXEL. [Concomitant]
     Active Substance: DOCETAXEL
     Indication: MALIGNANT NEOPLASM OF UNKNOWN PRIMARY SITE
     Dosage: DOSAGE IS UNCERTAIN.
     Route: 041
     Dates: start: 201201, end: 201207

REACTIONS (6)
  - Product use issue [Unknown]
  - Epistaxis [Unknown]
  - Disease progression [Fatal]
  - Headache [Unknown]
  - Neuropathy peripheral [Unknown]
  - Metastases to meninges [Not Recovered/Not Resolved]

NARRATIVE: CASE EVENT DATE: 2012
